FAERS Safety Report 18761421 (Version 7)
Quarter: 2021Q2

REPORT INFORMATION
  Report Type: Report from Study
  Country: US (occurrence: US)
  Receive Date: 20210119
  Receipt Date: 20210622
  Transmission Date: 20210717
  Serious: No
  Sender: FDA-Public Use
  Company Number: NVSC2021US010200

PATIENT
  Age: 26 Year
  Sex: Female

DRUGS (2)
  1. KESIMPTA [Suspect]
     Active Substance: OFATUMUMAB
     Indication: RELAPSING MULTIPLE SCLEROSIS
     Dosage: 20 MG
     Route: 030
     Dates: start: 20210115
  2. KESIMPTA [Suspect]
     Active Substance: OFATUMUMAB
     Route: 065

REACTIONS (11)
  - Injection site pain [Unknown]
  - Hyperhidrosis [Unknown]
  - Chills [Unknown]
  - Constipation [Unknown]
  - Injection site extravasation [Unknown]
  - Sensory loss [Unknown]
  - Vulvovaginal pain [Unknown]
  - Abdominal pain [Unknown]
  - Feeling cold [Unknown]
  - Injection site bruising [Unknown]
  - Injection site haemorrhage [Unknown]

NARRATIVE: CASE EVENT DATE: 20210115
